FAERS Safety Report 6710714-6 (Version None)
Quarter: 2010Q2

REPORT INFORMATION
  Report Type: 
  Country: None (occurrence: None)
  Receive Date: 20100504
  Receipt Date: 20100504
  Transmission Date: 20101027
  Serious: Yes (Other)
  Sender: FDA-Public Use
  Company Number: None

PATIENT
  Age: 7 Year
  Sex: Female
  Weight: 23.1334 kg

DRUGS (1)
  1. CHILDREN'S TYLENOL PLUS SUSPENSI [Suspect]
     Dosage: 10ML EVERY 4-5 HOURS PO
     Route: 048
     Dates: start: 20100423, end: 20100428

REACTIONS (1)
  - URTICARIA [None]
